FAERS Safety Report 8296220-9 (Version None)
Quarter: 2012Q2

REPORT INFORMATION
  Report Type: 
  Country: None (occurrence: None)
  Receive Date: 20120418
  Receipt Date: 20120411
  Transmission Date: 20120825
  Serious: No
  Sender: FDA-Public Use
  Company Number: PHHY2010BR53693

PATIENT
  Sex: Male
  Weight: 94 kg

DRUGS (4)
  1. HYDROCHLOROTHIAZIDE [Concomitant]
     Indication: HYPERTENSION
     Route: 048
  2. CLONAZEPAM [Concomitant]
     Indication: SLEEP DISORDER
     Route: 048
  3. DICLOFENAC SODIUM [Suspect]
     Indication: RADICULAR PAIN
     Dosage: 50 MG, 1 TABLET EVERY 8 HOURS.
  4. DICLOFENAC SODIUM [Suspect]
     Indication: PROCEDURAL PAIN
     Dosage: 50
     Route: 048

REACTIONS (3)
  - DRUG INEFFECTIVE [None]
  - WEIGHT DECREASED [None]
  - MEMORY IMPAIRMENT [None]
